FAERS Safety Report 5621352-0 (Version None)
Quarter: 2008Q1

REPORT INFORMATION
  Report Type: 
  Country: None (occurrence: None)
  Receive Date: 20080129
  Receipt Date: 20080114
  Transmission Date: 20080703
  Serious: Yes (Death, Hospitalization)
  Sender: FDA-Public Use
  Company Number: B0503169A

PATIENT
  Age: 52 Year
  Sex: Male

DRUGS (9)
  1. WARFARIN SODIUM [Suspect]
     Dosage: ORAL
     Route: 048
  2. IBUPROFEN [Suspect]
     Dosage: ORAL
     Route: 048
  3. PROPAFENONE (FORMULATION UNKNOWN) (PROPAFENONE) [Suspect]
     Dosage: ORAL
     Route: 048
  4. CARDIAC GLYCOSIDE (FORMULATION UNKNOWN) (CARDIAC GLYCOSIDE) [Suspect]
     Dosage: ORAL
     Route: 048
  5. COREG [Suspect]
     Dosage: ORAL
     Route: 048
  6. UNKNOWN (FORMULATION UNKNOWN) (UNKNOWN) [Suspect]
     Dosage: ORAL
     Route: 048
  7. TEMAZEPAM [Suspect]
     Dosage: ORAL
     Route: 048
  8. OXAZEPAM [Suspect]
     Dosage: ORAL
     Route: 048
  9. K-SPARING DIURETIC (FORMULATION UNKNOWN) (K-SPARINT DIUTETIC) [Suspect]
     Dosage: ORAL
     Route: 048

REACTIONS (3)
  - CARDIAC ARREST [None]
  - COMPLETED SUICIDE [None]
  - RESPIRATORY ARREST [None]
